FAERS Safety Report 5107542-4 (Version None)
Quarter: 2006Q3

REPORT INFORMATION
  Report Type: 
  Country: None (occurrence: None)
  Receive Date: 20060913
  Receipt Date: 20060913
  Transmission Date: 20061208
  Serious: Yes (Other)
  Sender: FDA-Public Use
  Company Number: None

PATIENT
  Sex: Male
  Weight: 90.7194 kg

DRUGS (2)
  1. TRASYLOL [Suspect]
     Indication: CARDIAC OPERATION
     Dates: start: 20060512, end: 20060512
  2. TRASYLOL [Suspect]
     Indication: HAEMORRHAGE PROPHYLAXIS
     Dates: start: 20060512, end: 20060512

REACTIONS (1)
  - RENAL FAILURE ACUTE [None]
